FAERS Safety Report 25191919 (Version 1)
Quarter: 2025Q2

REPORT INFORMATION
  Report Type: Spontaneous
  Country: CN (occurrence: CN)
  Receive Date: 20250414
  Receipt Date: 20250414
  Transmission Date: 20250717
  Serious: Yes (Death, Other)
  Sender: AMGEN
  Company Number: CN-AMGEN-CHNSP2025070321

PATIENT

DRUGS (2)
  1. BLINATUMOMAB [Suspect]
     Active Substance: BLINATUMOMAB
     Indication: B-cell type acute leukaemia
     Dosage: 9 MICROGRAM, QD (FOR FIRST 7 DAYS)
     Route: 040
  2. BLINATUMOMAB [Suspect]
     Active Substance: BLINATUMOMAB
     Dosage: 28 MICROGRAM, QD
     Route: 040

REACTIONS (19)
  - Death [Fatal]
  - Acute lymphocytic leukaemia recurrent [Unknown]
  - Acute graft versus host disease [Unknown]
  - Chronic graft versus host disease [Unknown]
  - Cystitis haemorrhagic [Unknown]
  - Post transplant lymphoproliferative disorder [Unknown]
  - Thrombotic microangiopathy [Unknown]
  - Immune effector cell-associated neurotoxicity syndrome [Unknown]
  - Cytokine release syndrome [Unknown]
  - Epstein-Barr virus infection reactivation [Unknown]
  - Cytomegalovirus infection reactivation [Unknown]
  - Pneumonia [Unknown]
  - Haematological infection [Unknown]
  - Herpes zoster reactivation [Unknown]
  - Human herpesvirus 6 infection reactivation [Unknown]
  - Upper respiratory tract infection [Unknown]
  - Soft tissue infection [Unknown]
  - Gastrointestinal infection [Unknown]
  - Urinary tract infection [Unknown]
